FAERS Safety Report 15637956 (Version 1)
Quarter: 2018Q4

REPORT INFORMATION
  Report Type: Spontaneous
  Country: US (occurrence: US)
  Receive Date: 20181120
  Receipt Date: 20181120
  Transmission Date: 20190205
  Serious: No
  Sender: FDA-Public Use
  Company Number: US-JNJFOC-20180712656

PATIENT
  Sex: Male

DRUGS (12)
  1. ASPIRIN. [Concomitant]
     Active Substance: ASPIRIN
  2. DOXYCYCLINE. [Concomitant]
     Active Substance: DOXYCYCLINE
  3. ELIQUIS [Concomitant]
     Active Substance: APIXABAN
  4. TESTOSTERONE. [Concomitant]
     Active Substance: TESTOSTERONE
  5. TAMSULOSIN [Concomitant]
     Active Substance: TAMSULOSIN
  6. ENALAPRIL [Concomitant]
     Active Substance: ENALAPRIL
  7. ROSUVASTATIN. [Concomitant]
     Active Substance: ROSUVASTATIN
  8. IMBRUVICA [Suspect]
     Active Substance: IBRUTINIB
     Indication: PRODUCT USED FOR UNKNOWN INDICATION
     Route: 048
     Dates: start: 2018
  9. CARVEDILOL. [Concomitant]
     Active Substance: CARVEDILOL
  10. FUROSEMIDE. [Concomitant]
     Active Substance: FUROSEMIDE
  11. IMBRUVICA [Suspect]
     Active Substance: IBRUTINIB
     Indication: PRODUCT USED FOR UNKNOWN INDICATION
     Route: 048
  12. PANTOPRAZOLE [Concomitant]
     Active Substance: PANTOPRAZOLE

REACTIONS (1)
  - Product dose omission [Unknown]
